FAERS Safety Report 8403051-5 (Version None)
Quarter: 2012Q2

REPORT INFORMATION
  Report Type: 
  Country: None (occurrence: None)
  Receive Date: 20120601
  Receipt Date: 20120529
  Transmission Date: 20120825
  Serious: Yes (Life-Threatening, Hospitalization, Other)
  Sender: FDA-Public Use
  Company Number: BR-ELI_LILLY_AND_COMPANY-BR201205010163

PATIENT
  Sex: Female

DRUGS (2)
  1. HUMALOG [Suspect]
     Indication: DIABETES MELLITUS
     Dosage: UNK, UNKNOWN
     Route: 065
  2. HUMALOG [Suspect]
     Dosage: 8 IU, UNKNOWN
     Route: 065
     Dates: start: 20120526

REACTIONS (4)
  - DRUG INEFFECTIVE [None]
  - COMA [None]
  - HOSPITALISATION [None]
  - HYPERGLYCAEMIA [None]
